FAERS Safety Report 16836126 (Version 1)
Quarter: 2019Q3

REPORT INFORMATION
  Report Type: Spontaneous
  Country: US (occurrence: US)
  Receive Date: 20190921
  Receipt Date: 20190921
  Transmission Date: 20191005
  Serious: Yes (Hospitalization)
  Sender: FDA-Public Use
  Company Number: PHEH2019US038123

PATIENT
  Age: 60 Year
  Sex: Female

DRUGS (1)
  1. PIQRAY [Suspect]
     Active Substance: ALPELISIB
     Indication: BREAST CANCER METASTATIC
     Dosage: 300 MG, QD
     Route: 048

REACTIONS (4)
  - Dyspnoea [Not Recovered/Not Resolved]
  - Rash [Not Recovered/Not Resolved]
  - Hyperglycaemia [Not Recovered/Not Resolved]
  - Pneumonitis [Not Recovered/Not Resolved]
